FAERS Safety Report 22639549 (Version 1)
Quarter: 2023Q2

REPORT INFORMATION
  Report Type: Report from Study
  Country: EG (occurrence: EG)
  Receive Date: 20230626
  Receipt Date: 20230626
  Transmission Date: 20230722
  Serious: Yes (Other)
  Sender: FDA-Public Use
  Company Number: EG-Merck Healthcare KGaA-2023456460

PATIENT
  Sex: Female

DRUGS (1)
  1. REBIF [Suspect]
     Active Substance: INTERFERON BETA-1A
     Indication: Multiple sclerosis
     Route: 058

REACTIONS (4)
  - Venous thrombosis [Recovered/Resolved]
  - Cardiac operation [Recovered/Resolved]
  - Laziness [Not Recovered/Not Resolved]
  - Fatigue [Not Recovered/Not Resolved]
